FAERS Safety Report 6758196-2 (Version None)
Quarter: 2010Q2

REPORT INFORMATION
  Report Type: 
  Country: None (occurrence: None)
  Receive Date: 20100524
  Receipt Date: 20100204
  Transmission Date: 20101027
  Serious: Yes (Hospitalization)
  Sender: FDA-Public Use
  Company Number: 006222

PATIENT
  Sex: Female
  Weight: 74.8 kg

DRUGS (5)
  1. CIMZIA [Suspect]
     Indication: CROHN'S DISEASE
     Dosage: (SUBCUTANEOUS)
     Route: 058
     Dates: start: 20090824
  2. DOXYCYCLINE [Suspect]
     Indication: ROSACEA
  3. PREDNISONE [Suspect]
     Indication: ROSACEA
  4. POTASSIUM [Concomitant]
  5. PRILOSEC [Concomitant]

REACTIONS (4)
  - ASTHENIA [None]
  - CROHN'S DISEASE [None]
  - OEDEMA PERIPHERAL [None]
  - ROSACEA [None]
